FAERS Safety Report 19501856 (Version 1)
Quarter: 2021Q3

REPORT INFORMATION
  Report Type: Spontaneous
  Country: US (occurrence: US)
  Receive Date: 20210706
  Receipt Date: 20210706
  Transmission Date: 20211014
  Serious: Yes (Hospitalization)
  Sender: FDA-Public Use
  Company Number: None

PATIENT
  Age: 39 Year
  Sex: Male

DRUGS (8)
  1. OMEPRAZOLE. [Concomitant]
     Active Substance: OMEPRAZOLE
  2. OXYCODONE [Concomitant]
     Active Substance: OXYCODONE
  3. BACLOFEN. [Concomitant]
     Active Substance: BACLOFEN
  4. FLUTICASONE. [Concomitant]
     Active Substance: FLUTICASONE
  5. CARVEDILOL. [Concomitant]
     Active Substance: CARVEDILOL
  6. TOBRAMYCIN 300MG/5ML TOBI GEQ [Suspect]
     Active Substance: TOBRAMYCIN
     Indication: PULMONARY FIBROSIS
     Dosage: ?          OTHER ROUTE:INH CONTINUOSULY?
  7. ENALAPRIL [Concomitant]
     Active Substance: ENALAPRIL
  8. POLYETH GLYC [Concomitant]
     Active Substance: POLYETHYLENE GLYCOLS

REACTIONS (1)
  - Pneumonia [None]

NARRATIVE: CASE EVENT DATE: 20210625
